FAERS Safety Report 8269980-0 (Version None)
Quarter: 2012Q2

REPORT INFORMATION
  Report Type: 
  Country: None (occurrence: None)
  Receive Date: 20120410
  Receipt Date: 20120402
  Transmission Date: 20120825
  Serious: Yes (Other)
  Sender: FDA-Public Use
  Company Number: US-JNJFOC-20120400787

PATIENT
  Sex: Female
  Weight: 104.33 kg

DRUGS (24)
  1. DURAGESIC-100 [Suspect]
     Indication: SPINAL OSTEOARTHRITIS
     Route: 062
     Dates: start: 20060101, end: 20090101
  2. DURAGESIC-100 [Suspect]
     Route: 062
     Dates: start: 20090101
  3. DURAGESIC-100 [Suspect]
     Indication: SCIATICA
     Route: 062
     Dates: start: 20060101, end: 20090101
  4. DURAGESIC-100 [Suspect]
     Route: 062
     Dates: start: 20090101
  5. DURAGESIC-100 [Suspect]
     Route: 062
     Dates: start: 20090101
  6. SEROQUEL [Concomitant]
     Indication: DEPRESSION
     Route: 048
     Dates: start: 20070501
  7. DURAGESIC-100 [Suspect]
     Indication: INTERVERTEBRAL DISC DEGENERATION
     Route: 062
     Dates: start: 20060101, end: 20090101
  8. DURAGESIC-100 [Suspect]
     Route: 062
     Dates: start: 20090101
  9. DURAGESIC-100 [Suspect]
     Route: 062
     Dates: start: 20090101
  10. MORPHINE SULFATE [Concomitant]
     Indication: BREAKTHROUGH PAIN
     Dosage: AS NEEDED
     Route: 048
     Dates: start: 20060101
  11. PROMETHAZINE [Concomitant]
     Indication: PAIN
     Dosage: AS NEEDED
     Route: 048
     Dates: start: 19910101
  12. DURAGESIC-100 [Suspect]
     Indication: MIGRAINE
     Route: 062
     Dates: start: 20060101, end: 20090101
  13. DURAGESIC-100 [Suspect]
     Route: 062
     Dates: start: 20090101
  14. DURAGESIC-100 [Suspect]
     Route: 062
     Dates: start: 20090101
  15. PROMETHAZINE [Concomitant]
     Indication: HEADACHE
     Dosage: AS NEEDED
     Route: 048
     Dates: start: 19910101
  16. PROZAC [Concomitant]
     Indication: DEPRESSION
     Dosage: START DATE: 2007 OR 2008
     Route: 048
     Dates: start: 20080101
  17. DURAGESIC-100 [Suspect]
     Route: 062
     Dates: start: 20090101
  18. XANAX [Concomitant]
     Indication: PANIC ATTACK
     Route: 048
     Dates: start: 19900101
  19. DURAGESIC-100 [Suspect]
     Indication: FIBROMYALGIA
     Route: 062
     Dates: start: 20060101, end: 20090101
  20. DURAGESIC-100 [Suspect]
     Route: 062
     Dates: start: 20060101, end: 20090101
  21. DURAGESIC-100 [Suspect]
     Route: 062
     Dates: start: 20090101
  22. DURAGESIC-100 [Suspect]
     Indication: NEUROPATHY PERIPHERAL
     Route: 062
     Dates: start: 20060101, end: 20090101
  23. DURAGESIC-100 [Suspect]
     Indication: BENIGN INTRACRANIAL HYPERTENSION
     Route: 062
     Dates: start: 20060101, end: 20090101
  24. DURAGESIC-100 [Suspect]
     Indication: TRIGEMINAL NEURALGIA
     Route: 062
     Dates: start: 20060101, end: 20090101

REACTIONS (6)
  - DRUG DOSE OMISSION [None]
  - APPLICATION SITE DISCOLOURATION [None]
  - TOOTH ABSCESS [None]
  - PRODUCT QUALITY ISSUE [None]
  - DYSKINESIA [None]
  - WITHDRAWAL SYNDROME [None]
